FAERS Safety Report 7854756-6 (Version None)
Quarter: 2011Q4

REPORT INFORMATION
  Report Type: 
  Country: None (occurrence: None)
  Receive Date: 20111026
  Receipt Date: 20110912
  Transmission Date: 20120403
  Serious: No
  Sender: FDA-Public Use
  Company Number: US-MUTUAL PHARMACEUTICAL COMPANY, INC.-CLCY20110126

PATIENT
  Sex: Female
  Weight: 63.56 kg

DRUGS (3)
  1. COLCRYS [Suspect]
     Route: 048
     Dates: start: 20110901
  2. NONE [Concomitant]
  3. COLCRYS [Suspect]
     Indication: GOUT
     Route: 048
     Dates: start: 20110801, end: 20110831

REACTIONS (2)
  - ABDOMINAL PAIN UPPER [None]
  - DIARRHOEA [None]
